FAERS Safety Report 9323010 (Version 1)
Quarter: 2013Q2

REPORT INFORMATION
  Report Type: Spontaneous
  Country: US (occurrence: US)
  Receive Date: 20130603
  Receipt Date: 20130603
  Transmission Date: 20140414
  Serious: No
  Sender: FDA-Public Use
  Company Number: US-009507513-1305USA016516

PATIENT
  Sex: Female
  Weight: 46.26 kg

DRUGS (3)
  1. REBETOL [Suspect]
     Indication: HEPATITIS C
     Dosage: UNK
     Dates: start: 20130407
  2. TELAPREVIR [Suspect]
     Indication: HEPATITIS C
     Dosage: INCIVEK
     Dates: start: 20130407
  3. PEGASYS [Suspect]
     Indication: HEPATITIS C
     Dosage: UNK
     Dates: start: 20130407

REACTIONS (8)
  - Gastrointestinal disorder [Unknown]
  - Diarrhoea [Unknown]
  - Decreased appetite [Unknown]
  - Pain [Unknown]
  - Vomiting [Unknown]
  - Epistaxis [Unknown]
  - Weight decreased [Unknown]
  - Malaise [Unknown]
